FAERS Safety Report 5371308-0 (Version None)
Quarter: 2007Q2

REPORT INFORMATION
  Report Type: 
  Country: None (occurrence: None)
  Receive Date: 20070615
  Receipt Date: 20061005
  Transmission Date: 20071010
  Serious: Yes (Other)
  Sender: FDA-Public Use
  Company Number: 200618340US

PATIENT
  Age: 57 Year
  Sex: Female

DRUGS (12)
  1. LANTUS [Suspect]
     Indication: DIABETES MELLITUS NON-INSULIN-DEPENDENT
     Dosage: 10 U QAM
     Dates: start: 20061004
  2. REPAGLINIDE (PRANDIN) [Concomitant]
  3. METFORMIN HYDROCHLORIDE (GLUCOPHAGE XR) [Concomitant]
  4. AVANDIA [Concomitant]
  5. ZOLOFT [Concomitant]
  6. ATORVASTATIN CALCIUM (LIPITOR) [Concomitant]
  7. SYNTHROID [Concomitant]
  8. ZYRTEC [Concomitant]
  9. INSULIN HUMAN [Concomitant]
  10. INSULIN HUMAN INJECTION [Concomitant]
  11. ISOPHANE (NOVOLIN 70/30) [Concomitant]
  12. REGULAR INSULIN [Concomitant]

REACTIONS (1)
  - HYPERGLYCAEMIA [None]
